FAERS Safety Report 10079547 (Version 1)
Quarter: 2014Q2

REPORT INFORMATION
  Report Type: Spontaneous
  Country: US (occurrence: None)
  Receive Date: 20140414
  Receipt Date: 20140414
  Transmission Date: 20141212
  Serious: Yes (Disabling, Other)
  Sender: FDA-Public Use
  Company Number: None

PATIENT
  Age: 56 Year
  Sex: Female
  Weight: 65.77 kg

DRUGS (1)
  1. LEVAQUIN [Suspect]
     Indication: BRONCHITIS
     Route: 048
     Dates: start: 20140329, end: 20140329

REACTIONS (12)
  - Myalgia [None]
  - Muscle spasms [None]
  - Burning sensation [None]
  - Temperature intolerance [None]
  - Dizziness [None]
  - Disorientation [None]
  - Tremor [None]
  - Nausea [None]
  - Dysgeusia [None]
  - Migraine [None]
  - Insomnia [None]
  - Skin exfoliation [None]
